FAERS Safety Report 8567364-9 (Version None)
Quarter: 2012Q3

REPORT INFORMATION
  Report Type: 
  Country: None (occurrence: None)
  Receive Date: 20120803
  Receipt Date: 20120730
  Transmission Date: 20120928
  Serious: Yes (Hospitalization)
  Sender: FDA-Public Use
  Company Number: PHEH2012US015161

PATIENT
  Sex: Male

DRUGS (1)
  1. GILENYA [Suspect]
     Indication: MULTIPLE SCLEROSIS
     Dosage: 0.5 MG, QD
     Route: 048
     Dates: start: 20120716

REACTIONS (6)
  - ENZYME LEVEL INCREASED [None]
  - BLOOD POTASSIUM DECREASED [None]
  - NECK PAIN [None]
  - HEADACHE [None]
  - MUSCLE SPASMS [None]
  - CHEST PAIN [None]
